FAERS Safety Report 10632308 (Version 1)
Quarter: 2014Q4

REPORT INFORMATION
  Report Type: Spontaneous
  Country: SE (occurrence: None)
  Receive Date: 20141203
  Receipt Date: 20141203
  Transmission Date: 20150529
  Serious: Yes (Other)
  Sender: FDA-Public Use
  Company Number: 2644805

PATIENT
  Age: 71 Year
  Sex: Female

DRUGS (1)
  1. OXALIPLATIN. [Suspect]
     Active Substance: OXALIPLATIN
     Indication: PRODUCT USED FOR UNKNOWN INDICATION

REACTIONS (6)
  - Musculoskeletal stiffness [None]
  - Hypoaesthesia [None]
  - Swollen tongue [None]
  - Muscular weakness [None]
  - Speech disorder [None]
  - Muscle spasms [None]
